FAERS Safety Report 8819441 (Version 2)
Quarter: 2013Q1

REPORT INFORMATION
  Report Type: Spontaneous
  Country: CA (occurrence: CA)
  Receive Date: 20121001
  Receipt Date: 20130114
  Transmission Date: 20140127
  Serious: Yes (Other)
  Sender: FDA-Public Use
  Company Number: CA-009507513-1209CAN011519

PATIENT
  Sex: Male
  Weight: 70 kg

DRUGS (4)
  1. ISENTRESS [Suspect]
     Indication: PRODUCT USED FOR UNKNOWN INDICATION
     Dosage: 400 MG, BID
     Route: 065
     Dates: start: 20111215, end: 20120116
  2. TRUVADA [Concomitant]
  3. VALACYCLOVIR HYDROCHLORIDE [Concomitant]
  4. LYRICA [Concomitant]

REACTIONS (1)
  - Drug reaction with eosinophilia and systemic symptoms [Unknown]
